FAERS Safety Report 4521919-7 (Version None)
Quarter: 2004Q4

REPORT INFORMATION
  Report Type: 
  Country: None (occurrence: None)
  Receive Date: 20041206
  Receipt Date: 20041123
  Transmission Date: 20050328
  Serious: Yes (Other)
  Sender: FDA-Public Use
  Company Number: 2004100116

PATIENT
  Age: 58 Year
  Sex: Female

DRUGS (3)
  1. PROVERA [Suspect]
     Indication: HORMONE REPLACEMENT THERAPY
     Dosage: INTRAMUSCULAR
     Route: 030
     Dates: start: 19950101, end: 20040101
  2. PROVELLA-14 (ESTROGENS CONJUGATED, MEDROXYPROGESTERONE ACETATE) [Suspect]
     Indication: HORMONE REPLACEMENT THERAPY
     Dosage: INTRAMUSCULAR
     Route: 030
     Dates: start: 19950101, end: 20040101
  3. ESTROPIPATE [Concomitant]
     Indication: HORMONE REPLACEMENT THERAPY
     Dosage: INTRAMUSCULAR
     Route: 030
     Dates: start: 19950101, end: 20040101

REACTIONS (3)
  - BREAST CANCER FEMALE [None]
  - OESTROGEN RECEPTOR ASSAY POSITIVE [None]
  - PROGESTERONE RECEPTOR ASSAY POSITIVE [None]
